FAERS Safety Report 10628256 (Version 1)
Quarter: 2014Q4

REPORT INFORMATION
  Report Type: Spontaneous
  Country: US (occurrence: US)
  Receive Date: 20141205
  Receipt Date: 20141205
  Transmission Date: 20150529
  Serious: Yes (Other)
  Sender: FDA-Public Use
  Company Number: US-BRISTOL-MYERS SQUIBB COMPANY-21587753

PATIENT
  Age: 83 Year
  Sex: Male

DRUGS (2)
  1. ENZALUTAMIDE [Interacting]
     Active Substance: ENZALUTAMIDE
     Dosage: CAP
     Dates: start: 20140312
  2. WARFARIN SODIUM. [Suspect]
     Active Substance: WARFARIN SODIUM

REACTIONS (7)
  - Discomfort [Unknown]
  - Fatigue [Unknown]
  - Pollakiuria [Unknown]
  - Drug interaction [Unknown]
  - International normalised ratio decreased [Unknown]
  - Micturition urgency [Unknown]
  - Deep vein thrombosis [Unknown]
